FAERS Safety Report 10253594 (Version 1)
Quarter: 2014Q2

REPORT INFORMATION
  Report Type: Spontaneous
  Country: HK (occurrence: HK)
  Receive Date: 20140623
  Receipt Date: 20140623
  Transmission Date: 20141212
  Serious: Yes (Other)
  Sender: FDA-Public Use
  Company Number: CHPA2014HK008446

PATIENT
  Sex: Female

DRUGS (1)
  1. OTRIVIN MENTHOL [Suspect]
     Indication: NASAL CONGESTION
     Dosage: 1 PUMP, UNK
     Route: 045

REACTIONS (2)
  - Hypoaesthesia [Recovered/Resolved]
  - Paraesthesia [Recovered/Resolved]
